FAERS Safety Report 8510973-3 (Version None)
Quarter: 2012Q3

REPORT INFORMATION
  Report Type: 
  Country: None (occurrence: None)
  Receive Date: 20120710
  Receipt Date: 20120710
  Transmission Date: 20120928
  Serious: Yes (Other)
  Sender: FDA-Public Use
  Company Number: None

PATIENT
  Age: 63 Year
  Sex: Female

DRUGS (2)
  1. LORAZEPAM [Suspect]
     Indication: INSOMNIA
     Dosage: 2 TABLETS AT BEDTIME BY MOUTH
     Route: 048
     Dates: start: 20120521, end: 20120528
  2. LORAZEPAM [Suspect]
     Indication: INSOMNIA
     Dosage: 2 TABLETS AT BEDTIME BY MOUTH
     Route: 048
     Dates: start: 20120529

REACTIONS (6)
  - PSYCHOMOTOR HYPERACTIVITY [None]
  - NIGHTMARE [None]
  - INSOMNIA [None]
  - DRUG EFFECT DECREASED [None]
  - PRODUCT QUALITY ISSUE [None]
  - PARADOXICAL DRUG REACTION [None]
